FAERS Safety Report 6912682-0 (Version None)
Quarter: 2010Q3

REPORT INFORMATION
  Report Type: 
  Country: None (occurrence: None)
  Receive Date: 20100806
  Receipt Date: 20080929
  Transmission Date: 20110219
  Serious: No
  Sender: FDA-Public Use
  Company Number: US-PFIZER INC-2008082852

PATIENT
  Sex: Female

DRUGS (3)
  1. DETROL LA [Suspect]
  2. DETROL [Suspect]
  3. ANTICOAGULANTS [Suspect]

REACTIONS (1)
  - HEART RATE INCREASED [None]
